FAERS Safety Report 8482710-2 (Version None)
Quarter: 2012Q3

REPORT INFORMATION
  Report Type: 
  Country: None (occurrence: None)
  Receive Date: 20120702
  Receipt Date: 20120626
  Transmission Date: 20120928
  Serious: Yes (Hospitalization, Other)
  Sender: FDA-Public Use
  Company Number: US-MERCK-1107USA02911

PATIENT
  Age: 76 Year
  Sex: Male
  Weight: 61 kg

DRUGS (5)
  1. PREDNISONE [Concomitant]
     Route: 065
     Dates: start: 20020101, end: 20110201
  2. FOSAMAX PLUS D [Suspect]
     Indication: OSTEOPOROSIS
     Route: 048
     Dates: start: 20070214, end: 20081201
  3. ALENDRONATE SODIUM [Suspect]
     Indication: OSTEOPOROSIS
     Route: 048
     Dates: start: 20090113, end: 20100805
  4. LEVOTHROID [Concomitant]
     Indication: HYPOTHYROIDISM
     Route: 065
     Dates: start: 20030101, end: 20070101
  5. FOSAMAX [Suspect]
     Indication: OSTEOPOROSIS
     Route: 048
     Dates: start: 20040220, end: 20061122

REACTIONS (63)
  - LEUKOCYTOSIS [None]
  - LIP AND/OR ORAL CAVITY CANCER [None]
  - CONJUNCTIVAL HAEMORRHAGE [None]
  - PULMONARY HYPERTENSION [None]
  - PNEUMONIA [None]
  - DRUG HYPERSENSITIVITY [None]
  - DEPRESSION [None]
  - RETINAL VEIN OCCLUSION [None]
  - PULPITIS DENTAL [None]
  - OEDEMA PERIPHERAL [None]
  - GRIEF REACTION [None]
  - MUSCULOSKELETAL CHEST PAIN [None]
  - SPINAL COMPRESSION FRACTURE [None]
  - ANXIETY [None]
  - CATARACT [None]
  - SPINAL OSTEOARTHRITIS [None]
  - TINNITUS [None]
  - BLOOD THYROID STIMULATING HORMONE DECREASED [None]
  - DYSPNOEA EXERTIONAL [None]
  - FALL [None]
  - AORTIC ARTERIOSCLEROSIS [None]
  - APHTHOUS STOMATITIS [None]
  - CARDIAC MURMUR [None]
  - JOINT STIFFNESS [None]
  - TOOTH FRACTURE [None]
  - DENTAL CARIES [None]
  - CYSTOID MACULAR OEDEMA [None]
  - SQUAMOUS CELL CARCINOMA OF SKIN [None]
  - JOINT SWELLING [None]
  - BODY HEIGHT DECREASED [None]
  - MITRAL VALVE STENOSIS [None]
  - INGUINAL HERNIA [None]
  - TRICUSPID VALVE INCOMPETENCE [None]
  - PROSTATIC SPECIFIC ANTIGEN INCREASED [None]
  - PLEURAL EFFUSION [None]
  - SLEEP APNOEA SYNDROME [None]
  - CHRONIC OBSTRUCTIVE PULMONARY DISEASE [None]
  - BACK PAIN [None]
  - ASTHENIA [None]
  - ANAEMIA [None]
  - ARRHYTHMIA SUPRAVENTRICULAR [None]
  - MITRAL VALVE INCOMPETENCE [None]
  - TOOTH DISORDER [None]
  - RASH [None]
  - HALLUCINATION [None]
  - DYSPNOEA PAROXYSMAL NOCTURNAL [None]
  - DRUG INEFFECTIVE [None]
  - INTERVERTEBRAL DISC DEGENERATION [None]
  - OSTEONECROSIS OF JAW [None]
  - CARDIAC FAILURE CONGESTIVE [None]
  - AORTIC VALVE STENOSIS [None]
  - EXOSTOSIS [None]
  - LEFT ATRIAL DILATATION [None]
  - TRANSIENT ISCHAEMIC ATTACK [None]
  - POSTERIOR CAPSULE RUPTURE [None]
  - ARTHRALGIA [None]
  - ADVERSE DRUG REACTION [None]
  - CERVICOBRACHIAL SYNDROME [None]
  - MALAISE [None]
  - INSOMNIA [None]
  - HALLUCINATION, AUDITORY [None]
  - ROAD TRAFFIC ACCIDENT [None]
  - CONSTIPATION [None]
